FAERS Safety Report 6104908-0 (Version None)
Quarter: 2009Q1

REPORT INFORMATION
  Report Type: 
  Country: None (occurrence: None)
  Receive Date: 20090304
  Receipt Date: 20090304
  Transmission Date: 20090719
  Serious: Yes (Other)
  Sender: FDA-Public Use
  Company Number: None

PATIENT
  Sex: Female

DRUGS (1)
  1. 2% CHLORHEXIDINE GLUCONATE CLOTH, SAGE PRODUCTS INC NDC: 053462-705 [Suspect]
     Indication: PREOPERATIVE CARE
     Dosage: ONE TIME TOPICAL APPLICATION
     Route: 061
     Dates: start: 20090112

REACTIONS (3)
  - BURNING SENSATION [None]
  - PRURITUS [None]
  - SKIN DISCOLOURATION [None]
